FAERS Safety Report 4610883-8 (Version None)
Quarter: 2005Q2

REPORT INFORMATION
  Report Type: 
  Country: None (occurrence: None)
  Receive Date: 20050302
  Receipt Date: 20040608
  Transmission Date: 20051028
  Serious: Yes (Hospitalization)
  Sender: FDA-Public Use
  Company Number: 2004-117062-NL

PATIENT
  Age: 78 Year
  Sex: Female

DRUGS (4)
  1. REMERON SOLTAB [Suspect]
     Dosage: 30 MG QD ORAL
     Route: 048
     Dates: start: 20031023, end: 20040320
  2. NORVASC [Concomitant]
  3. LIBRIUM ^HOFFMAN^ [Concomitant]
  4. XANAX [Concomitant]

REACTIONS (1)
  - HEART RATE INCREASED [None]
